FAERS Safety Report 9655503 (Version 2)
Quarter: 2013Q4

REPORT INFORMATION
  Report Type: Report from Study
  Country: BR (occurrence: BR)
  Receive Date: 20131029
  Receipt Date: 20131202
  Transmission Date: 20140711
  Serious: Yes (Hospitalization, Other)
  Sender: FDA-Public Use
  Company Number: PHHY2013BR121009

PATIENT
  Age: 59 Year
  Sex: Female

DRUGS (8)
  1. VALSARTAN [Suspect]
     Indication: HYPERTENSION
     Dosage: 1 DF (320 MG), DAILY IN THE MORNING
     Dates: start: 20120830
  2. VALSARTAN [Suspect]
     Dosage: 1 DF,(320 MG) TABLET DAILY
     Dates: start: 201209, end: 201212
  3. DIOVAN [Suspect]
     Indication: HYPERTENSION
     Dosage: 1 DF,DAILY(320 MG)
     Route: 048
     Dates: start: 20120830, end: 201209
  4. DIOVAN [Suspect]
     Dosage: 1 DF, DAILY
     Route: 048
     Dates: start: 201301
  5. AAS [Concomitant]
     Indication: COAGULOPATHY
     Dosage: 1 DF, DAILY
     Route: 048
     Dates: start: 20120831
  6. AAS [Concomitant]
     Indication: PROPHYLAXIS
  7. MELOCOX [Concomitant]
     Indication: HERNIA
     Dosage: 1 DF, DAILY
     Route: 048
  8. MELOCOX [Concomitant]
     Dosage: UNK UKN, UNK

REACTIONS (10)
  - Cardiac arrest [Recovering/Resolving]
  - Panic disorder [Recovering/Resolving]
  - Weight decreased [Unknown]
  - Hypertension [Unknown]
  - Sleep disorder [Unknown]
  - Feeling abnormal [Unknown]
  - Headache [Recovering/Resolving]
  - Dizziness [Recovering/Resolving]
  - Abdominal pain upper [Recovered/Resolved]
  - Blood pressure decreased [Unknown]
